FAERS Safety Report 8285358-8 (Version None)
Quarter: 2012Q2

REPORT INFORMATION
  Report Type: 
  Country: None (occurrence: None)
  Receive Date: 20120413
  Receipt Date: 20120409
  Transmission Date: 20120825
  Serious: No
  Sender: FDA-Public Use
  Company Number: US-PFIZER INC-2012088724

PATIENT
  Sex: Female

DRUGS (6)
  1. DONEPEZIL [Concomitant]
     Dosage: UNK
  2. JANUVIA [Concomitant]
     Indication: DIABETES MELLITUS
     Dosage: UNK
  3. FUROSEMIDE [Concomitant]
     Dosage: UNK
  4. METOPROLOL [Concomitant]
     Dosage: UNK
  5. GLIPIZIDE [Suspect]
     Indication: DIABETES MELLITUS
     Dosage: 10 MG, 2X/DAY
     Route: 048
     Dates: start: 20110103
  6. LISINOPRIL [Concomitant]
     Dosage: UNK

REACTIONS (1)
  - MEDICATION RESIDUE [None]
